FAERS Safety Report 20147044 (Version 1)
Quarter: 2021Q4

REPORT INFORMATION
  Report Type: Spontaneous
  Country: US (occurrence: US)
  Receive Date: 20211203
  Receipt Date: 20211203
  Transmission Date: 20220303
  Serious: No
  Sender: FDA-Public Use
  Company Number: US-SA-SAC20211124001055

PATIENT
  Sex: Female
  Weight: 52.16 kg

DRUGS (18)
  1. AUBAGIO [Suspect]
     Active Substance: TERIFLUNOMIDE
     Indication: Multiple sclerosis
     Dosage: 1 DF, QD
     Route: 048
     Dates: start: 201905
  2. ALEVE [Concomitant]
     Active Substance: NAPROXEN SODIUM
  3. TYLENOL [Concomitant]
     Active Substance: ACETAMINOPHEN
  4. IBUPROFEN [Concomitant]
     Active Substance: IBUPROFEN
  5. OMEGAMINT [Concomitant]
  6. VITAMIN D3 [Concomitant]
     Active Substance: CHOLECALCIFEROL
  7. CRANBERRY [Concomitant]
     Active Substance: CRANBERRY
  8. CALCIUM [Concomitant]
     Active Substance: CALCIUM
  9. VITAMIN C [Concomitant]
     Active Substance: ASCORBIC ACID
  10. BIOTIN [Concomitant]
     Active Substance: BIOTIN
  11. OMEPRAZOLE [Concomitant]
     Active Substance: OMEPRAZOLE
  12. COLACE [Concomitant]
     Active Substance: DOCUSATE SODIUM
  13. LEVOTHYROXINE [Concomitant]
     Active Substance: LEVOTHYROXINE
  14. VITAMIN E [Concomitant]
     Active Substance: .ALPHA.-TOCOPHEROL
  15. VITAMINS NOS [Concomitant]
     Active Substance: VITAMINS
  16. MAGNESIUM [Concomitant]
     Active Substance: MAGNESIUM
  17. B-COMPLEX [VITAMIN B COMPLEX] [Concomitant]
  18. PAPAYA ENZYME [PAPAIN] [Concomitant]

REACTIONS (3)
  - Burning sensation [Unknown]
  - Peripheral coldness [Unknown]
  - Endodontic procedure [Unknown]

NARRATIVE: CASE EVENT DATE: 20211101
